FAERS Safety Report 17355907 (Version 1)
Quarter: 2020Q1

REPORT INFORMATION
  Report Type: Report from Study
  Country: US (occurrence: US)
  Receive Date: 20200131
  Receipt Date: 20200131
  Transmission Date: 20200409
  Serious: Yes (Hospitalization)
  Sender: FDA-Public Use
  Company Number: US-EISAI MEDICAL RESEARCH-EC-2020-068428

PATIENT
  Age: 68 Year
  Sex: Female

DRUGS (1)
  1. LENVIMA [Suspect]
     Active Substance: LENVATINIB
     Indication: UTERINE CANCER
     Route: 048
     Dates: start: 20200107, end: 202001

REACTIONS (6)
  - Loss of consciousness [Unknown]
  - Blood pressure increased [Recovering/Resolving]
  - Seizure [Unknown]
  - Injury [Unknown]
  - Brain oedema [Unknown]
  - Headache [Unknown]

NARRATIVE: CASE EVENT DATE: 202001
